FAERS Safety Report 16100016 (Version 1)
Quarter: 2019Q1

REPORT INFORMATION
  Report Type: Spontaneous
  Country: US (occurrence: US)
  Receive Date: 20190321
  Receipt Date: 20190321
  Transmission Date: 20190418
  Serious: Yes (Hospitalization)
  Sender: FDA-Public Use
  Company Number: US-ASTRAZENECA-2019SE41305

PATIENT

DRUGS (11)
  1. PROLIA [Concomitant]
     Active Substance: DENOSUMAB
  2. SIMVASTATIN. [Concomitant]
     Active Substance: SIMVASTATIN
  3. WARFARIN [Concomitant]
     Active Substance: WARFARIN
  4. FLECAINIDE [Concomitant]
     Active Substance: FLECAINIDE
  5. NIFEDIPINE. [Concomitant]
     Active Substance: NIFEDIPINE
  6. TIROSINT [Concomitant]
     Active Substance: LEVOTHYROXINE SODIUM
  7. OMEPRAZOLE. [Suspect]
     Active Substance: OMEPRAZOLE
     Route: 048
     Dates: start: 20130904
  8. VITAMIN D3 [Concomitant]
     Active Substance: CHOLECALCIFEROL
  9. LISINOPRIL. [Suspect]
     Active Substance: LISINOPRIL
     Route: 048
     Dates: start: 20170424
  10. XELJANZ [Concomitant]
     Active Substance: TOFACITINIB CITRATE
  11. SPIRONOLACTONE. [Concomitant]
     Active Substance: SPIRONOLACTONE

REACTIONS (9)
  - Hepatic steatosis [Unknown]
  - Osteoporosis [Unknown]
  - Insomnia [Unknown]
  - Fatigue [Unknown]
  - Arrhythmia [Unknown]
  - Connective tissue disorder [Unknown]
  - Lymphadenopathy mediastinal [Unknown]
  - Hepatic enzyme increased [Recovered/Resolved]
  - Palpitations [Unknown]

NARRATIVE: CASE EVENT DATE: 20130921
